FAERS Safety Report 20641258 (Version 1)
Quarter: 2022Q1

REPORT INFORMATION
  Report Type: Spontaneous
  Country: US (occurrence: US)
  Receive Date: 20220328
  Receipt Date: 20220328
  Transmission Date: 20220423
  Serious: Yes (Hospitalization)
  Sender: FDA-Public Use
  Company Number: US-JNJFOC-20220344546

PATIENT
  Age: 69 Year
  Sex: Female

DRUGS (7)
  1. XARELTO [Suspect]
     Active Substance: RIVAROXABAN
     Indication: Atrial fibrillation
     Route: 048
  2. XARELTO [Suspect]
     Active Substance: RIVAROXABAN
     Indication: Cerebrovascular accident prophylaxis
  3. OFEV [Suspect]
     Active Substance: NINTEDANIB
     Indication: Idiopathic pulmonary fibrosis
     Route: 048
     Dates: start: 20201125, end: 202101
  4. OFEV [Suspect]
     Active Substance: NINTEDANIB
     Indication: Pulmonary arterial hypertension
     Route: 048
     Dates: start: 202101, end: 20210202
  5. GABAPENTIN [Suspect]
     Active Substance: GABAPENTIN
     Indication: Product used for unknown indication
     Route: 065
  6. METOPROLOL [Concomitant]
     Active Substance: METOPROLOL
  7. GLIPIZIDE [Concomitant]
     Active Substance: GLIPIZIDE

REACTIONS (19)
  - Subdural haematoma [Recovering/Resolving]
  - Hypertension [Not Recovered/Not Resolved]
  - Disorientation [Unknown]
  - Dysphagia [Unknown]
  - Fall [Recovering/Resolving]
  - Concussion [Recovering/Resolving]
  - Pain in extremity [Not Recovered/Not Resolved]
  - Diarrhoea [Not Recovered/Not Resolved]
  - Headache [Not Recovered/Not Resolved]
  - Nausea [Unknown]
  - Insomnia [Unknown]
  - Alopecia [Not Recovered/Not Resolved]
  - Muscular weakness [Unknown]
  - Intervertebral disc protrusion [Unknown]
  - Spinal synovial cyst [Unknown]
  - Hypoaesthesia [Unknown]
  - Blood glucose increased [Unknown]
  - Gait disturbance [Unknown]
  - Dry throat [Not Recovered/Not Resolved]

NARRATIVE: CASE EVENT DATE: 20201130
